FAERS Safety Report 12130194 (Version 1)
Quarter: 2016Q1

REPORT INFORMATION
  Report Type: Spontaneous
  Country: US (occurrence: None)
  Receive Date: 20160229
  Receipt Date: 20160229
  Transmission Date: 20160526
  Serious: No
  Sender: FDA-Public Use
  Company Number: None

PATIENT
  Age: 74 Year
  Sex: Female

DRUGS (1)
  1. PROLIA [Suspect]
     Active Substance: DENOSUMAB
     Indication: OSTEOPOROSIS
     Dosage: 60 MG/ML, EVERY 6 MONTHS, SUBCUTANEOUS
     Route: 058
     Dates: start: 20150828

REACTIONS (2)
  - Pain [None]
  - Rash [None]

NARRATIVE: CASE EVENT DATE: 201509
